FAERS Safety Report 25737242 (Version 2)
Quarter: 2025Q3

REPORT INFORMATION
  Report Type: Spontaneous
  Country: PE (occurrence: PE)
  Receive Date: 20250828
  Receipt Date: 20250926
  Transmission Date: 20251021
  Serious: Yes (Other)
  Sender: AMERICAN REGENT
  Company Number: PE-AMERICAN REGENT INC-2025003272

PATIENT
  Age: 56 Year
  Sex: Female

DRUGS (8)
  1. FERINJECT [Suspect]
     Active Substance: FERRIC CARBOXYMALTOSE
     Indication: Iron deficiency anaemia
     Route: 042
     Dates: start: 20250406, end: 20250406
  2. FERINJECT [Suspect]
     Active Substance: FERRIC CARBOXYMALTOSE
     Route: 042
     Dates: start: 20250409, end: 20250409
  3. FERINJECT [Suspect]
     Active Substance: FERRIC CARBOXYMALTOSE
     Route: 042
     Dates: start: 20250416, end: 20250416
  4. FERINJECT [Suspect]
     Active Substance: FERRIC CARBOXYMALTOSE
     Route: 042
     Dates: start: 20250426, end: 20250426
  5. HERBALS\TURMERIC [Concomitant]
     Active Substance: HERBALS\TURMERIC
     Indication: Product used for unknown indication
     Route: 065
  6. FOLIC ACID [Concomitant]
     Active Substance: FOLIC ACID
     Indication: Product used for unknown indication
     Route: 065
  7. VITAMIN B12 [Concomitant]
     Active Substance: CYANOCOBALAMIN
     Indication: Product used for unknown indication
     Route: 065
  8. ACETYLCYSTEINE [Concomitant]
     Active Substance: ACETYLCYSTEINE
     Indication: Product used for unknown indication
     Route: 065

REACTIONS (19)
  - Oral discomfort [Recovering/Resolving]
  - Iron overload [Unknown]
  - Dyspepsia [Recovering/Resolving]
  - Arthritis [Not Recovered/Not Resolved]
  - Gastritis [Unknown]
  - Liver iron concentration increased [Not Recovered/Not Resolved]
  - Temperature intolerance [Unknown]
  - Uterine polyp [Unknown]
  - Transferrin saturation increased [Not Recovered/Not Resolved]
  - Bone pain [Unknown]
  - Serum ferritin increased [Unknown]
  - Vaginal haemorrhage [Unknown]
  - Myalgia [Unknown]
  - Gait inability [Unknown]
  - Arrhythmia [Unknown]
  - Hypophosphataemia [Not Recovered/Not Resolved]
  - Arthralgia [Recovering/Resolving]
  - Back pain [Unknown]
  - Abdominal pain [Unknown]

NARRATIVE: CASE EVENT DATE: 20250101
